FAERS Safety Report 21108661 (Version 1)
Quarter: 2022Q3

REPORT INFORMATION
  Report Type: Spontaneous
  Country: US (occurrence: US)
  Receive Date: 20220721
  Receipt Date: 20220721
  Transmission Date: 20221027
  Serious: Yes (Hospitalization, Other)
  Sender: FDA-Public Use
  Company Number: US-BIOVITRUM-2022US08776

PATIENT
  Age: 1 Year
  Sex: Female
  Weight: 9 kg

DRUGS (22)
  1. SYNAGIS [Suspect]
     Active Substance: PALIVIZUMAB
     Indication: Dependence on respirator
     Dates: start: 202112
  2. SILDENAFIL CITRATE [Concomitant]
     Active Substance: SILDENAFIL CITRATE
  3. BENADRYL [Concomitant]
     Active Substance: DIPHENHYDRAMINE HYDROCHLORIDE
  4. NYSTATIN 100000/G CREAM(GM) [Concomitant]
     Dosage: 100000/G
  5. NEXIUM [Concomitant]
     Active Substance: ESOMEPRAZOLE MAGNESIUM
     Dosage: 10 MG SUSPDR PKT
  6. FAMOTIDINE [Concomitant]
     Active Substance: FAMOTIDINE
     Dosage: 40MG/5ML SUSP RECON
  7. MUPIROCIN [Concomitant]
     Active Substance: MUPIROCIN
     Dosage: 2 % OINT(GM)
  8. AZITHROMYCIN [Concomitant]
     Active Substance: AZITHROMYCIN
     Dosage: 200 MG/5ML SUSP RECON
  9. CALCITRIOL [Concomitant]
     Active Substance: CALCITRIOL
     Dosage: 1 MCG/ML SOLUTION
  10. DIURIL [Concomitant]
     Active Substance: CHLOROTHIAZIDE
     Dosage: 250 MG/5ML ORAL SUSP
  11. KATERZIA [Concomitant]
     Active Substance: AMLODIPINE BENZOATE
     Dosage: 1 MG/ML ORAL SUSP
  12. GABAPENTIN [Concomitant]
     Active Substance: GABAPENTIN
     Dosage: 250 MG/5ML SOLUTION
  13. MAGNESIUM CARBONATE [Concomitant]
     Active Substance: MAGNESIUM CARBONATE
     Dosage: 54 MG/5 ML LIQUID
  14. SYMBICORT [Concomitant]
     Active Substance: BUDESONIDE\FORMOTEROL FUMARATE DIHYDRATE
     Dosage: 160-4.5MCG HFA AER AD
  15. LORAZEPAM [Concomitant]
     Active Substance: LORAZEPAM
     Dosage: 2 MG/ML ORAL CONC
  16. ASPIRIN [Concomitant]
     Active Substance: ASPIRIN
     Dosage: TAB CHEW
  17. CULTURELLE 15B CELL CAP SPRINK [Concomitant]
  18. SYNAGIS [Suspect]
     Active Substance: PALIVIZUMAB
     Indication: DiGeorge^s syndrome
  19. LEVALBUTEROL TARTRATE [Concomitant]
     Active Substance: LEVALBUTEROL TARTRATE
  20. SYNAGIS [Suspect]
     Active Substance: PALIVIZUMAB
     Indication: Respiratory failure
  21. SYNAGIS [Suspect]
     Active Substance: PALIVIZUMAB
     Indication: Respiratory failure
  22. ZYRTEC [Concomitant]
     Active Substance: CETIRIZINE HYDROCHLORIDE

REACTIONS (1)
  - Pneumonia [Unknown]

NARRATIVE: CASE EVENT DATE: 20220601
